FAERS Safety Report 7738197-8 (Version None)
Quarter: 2011Q3

REPORT INFORMATION
  Report Type: 
  Country: None (occurrence: None)
  Receive Date: 20110908
  Receipt Date: 20110830
  Transmission Date: 20111222
  Serious: Yes (Hospitalization, Other)
  Sender: FDA-Public Use
  Company Number: JP-BAXTER-2011BH024664

PATIENT
  Age: 8 Month
  Sex: Male
  Weight: 10 kg

DRUGS (4)
  1. FEIBA [Suspect]
     Indication: HAEMORRHAGE INTRACRANIAL
     Route: 042
     Dates: start: 20110619, end: 20110625
  2. FEIBA [Suspect]
     Route: 042
     Dates: start: 20110626, end: 20110630
  3. FEIBA [Suspect]
     Indication: FACTOR VIII INHIBITION
     Route: 042
     Dates: start: 20110619, end: 20110625
  4. FEIBA [Suspect]
     Route: 042
     Dates: start: 20110626, end: 20110630

REACTIONS (1)
  - FACTOR VIII INHIBITION [None]
